FAERS Safety Report 6023659-4 (Version None)
Quarter: 2008Q4

REPORT INFORMATION
  Report Type: 
  Country: None (occurrence: None)
  Receive Date: 20081229
  Receipt Date: 20081229
  Transmission Date: 20090506
  Serious: No
  Sender: FDA-Public Use
  Company Number: None

PATIENT
  Age: 76 Year
  Sex: Female
  Weight: 65.7716 kg

DRUGS (2)
  1. DICLOFENAC SODIUM [Suspect]
     Indication: POLYARTHRITIS
     Dosage: 75MG TWICE A DAY PO
     Route: 048
     Dates: start: 20081119, end: 20081203
  2. VOLTAREN [Suspect]

REACTIONS (4)
  - ARTHRITIS [None]
  - DRUG INEFFECTIVE [None]
  - INSOMNIA [None]
  - THERAPEUTIC RESPONSE UNEXPECTED WITH DRUG SUBSTITUTION [None]
